FAERS Safety Report 8922938 (Version 1)
Quarter: 2012Q4

REPORT INFORMATION
  Report Type: 
  Country: FR (occurrence: FR)
  Receive Date: 20121123
  Receipt Date: 20121123
  Transmission Date: 20130627
  Serious: Yes (Death, Life-Threatening, Hospitalization)
  Sender: FDA-Public Use
  Company Number: FR-PFIZER INC-2012289141

PATIENT
  Sex: Male

DRUGS (8)
  1. VFEND [Suspect]
     Indication: PULMONARY ASPERGILLOSIS
     Dosage: 200 mg, 2x/day
     Route: 042
     Dates: start: 20120906, end: 20120921
  2. INEXIUM [Interacting]
     Dosage: 40 mg, 1x/day
     Route: 042
  3. CLAVENTIN [Suspect]
     Indication: INFECTIOUS PNEUMONITIS
     Dosage: 5 g, 3x/day
     Route: 042
     Dates: start: 20120915, end: 20120917
  4. COOLMETEC [Concomitant]
  5. IXPRIM [Concomitant]
  6. VITAMIN K1 [Concomitant]
  7. NEURONTIN [Concomitant]
  8. FUNGIZONE [Concomitant]

REACTIONS (11)
  - Drug interaction [Fatal]
  - Drug level increased [Fatal]
  - Jaundice cholestatic [Fatal]
  - Hepatic failure [Fatal]
  - Chromaturia [Fatal]
  - Prothrombin time ratio decreased [Fatal]
  - Hepatic encephalopathy [Fatal]
  - Gamma-glutamyltransferase increased [Fatal]
  - Blood albumin decreased [Fatal]
  - Blood bilirubin increased [Fatal]
  - Blood alkaline phosphatase increased [Fatal]
